FAERS Safety Report 13950803 (Version 1)
Quarter: 2017Q3

REPORT INFORMATION
  Report Type: Spontaneous
  Country: US (occurrence: US)
  Receive Date: 20170908
  Receipt Date: 20170908
  Transmission Date: 20171128
  Serious: No
  Sender: FDA-Public Use
  Company Number: US-ROCHE-1131133

PATIENT
  Sex: Male

DRUGS (1)
  1. RITUXAN [Suspect]
     Active Substance: RITUXIMAB
     Indication: B-CELL LYMPHOMA
     Dosage: 767.00 AT RATE 33 ML/HR
     Route: 065
     Dates: start: 20020109

REACTIONS (2)
  - Chills [Recovering/Resolving]
  - Fatigue [Recovering/Resolving]
